FAERS Safety Report 18747998 (Version 2)
Quarter: 2021Q1

REPORT INFORMATION
  Report Type: Report from Study
  Country: US (occurrence: US)
  Receive Date: 20210115
  Receipt Date: 20210205
  Transmission Date: 20210419
  Serious: No
  Sender: FDA-Public Use
  Company Number: NVSC2021US008792

PATIENT
  Sex: Female

DRUGS (8)
  1. MAYZENT [Suspect]
     Active Substance: SIPONIMOD
     Dosage: 2 MG, TANKE AS DIRECTED ON START PACK. COMPLETE BEFORE STARTING MAINTENANCE DOSE |  TAKE 1 TABLET BY
     Route: 048
  2. MAYZENT [Suspect]
     Active Substance: SIPONIMOD
     Dosage: 2 UNK
     Route: 048
  3. AMLODIPINE BESYLATE. [Concomitant]
     Active Substance: AMLODIPINE BESYLATE
     Indication: PRODUCT USED FOR UNKNOWN INDICATION
     Dosage: UNK
     Route: 065
  4. LANTUS [Concomitant]
     Active Substance: INSULIN GLARGINE
     Indication: PRODUCT USED FOR UNKNOWN INDICATION
     Dosage: UNK
     Route: 065
  5. MAYZENT [Suspect]
     Active Substance: SIPONIMOD
     Indication: MULTIPLE SCLEROSIS RELAPSE
     Dosage: 2 MG, QD
     Route: 048
  6. LABETALOL HCL [Concomitant]
     Active Substance: LABETALOL HYDROCHLORIDE
     Indication: PRODUCT USED FOR UNKNOWN INDICATION
     Dosage: UNK
     Route: 065
  7. MAYZENT [Suspect]
     Active Substance: SIPONIMOD
     Dosage: 2 MG,TANKE AS DIRECTED ON START PACK. COMPLETE BEFORE STARTING MAINTENANCE DOSE |  TAKE 1 TABLET BY
     Route: 048
  8. MAYZENT [Suspect]
     Active Substance: SIPONIMOD
     Dosage: 30 MG, QMO
     Route: 065
     Dates: start: 20210116

REACTIONS (6)
  - Skin lesion [Unknown]
  - Headache [Unknown]
  - Musculoskeletal stiffness [Unknown]
  - Neck pain [Unknown]
  - Back pain [Unknown]
  - Product dose omission issue [Unknown]
